FAERS Safety Report 8306882-5 (Version None)
Quarter: 2012Q2

REPORT INFORMATION
  Report Type: 
  Country: None (occurrence: None)
  Receive Date: 20120419
  Receipt Date: 20120404
  Transmission Date: 20120825
  Serious: Yes (Hospitalization, Other)
  Sender: FDA-Public Use
  Company Number: INT_00067_2012

PATIENT
  Age: 80 Year
  Sex: Female

DRUGS (2)
  1. CEFEPIME [Suspect]
     Indication: PNEUMONIA
     Dosage: (UNKNOWN DF)
  2. VANCOMYCIN [Suspect]
     Indication: PNEUMONIA
     Dosage: (UNKNOWN DF)

REACTIONS (6)
  - HAEMODIALYSIS [None]
  - NEUROTOXICITY [None]
  - DISORIENTATION [None]
  - AGITATION [None]
  - STATUS EPILEPTICUS [None]
  - METABOLIC ENCEPHALOPATHY [None]
